FAERS Safety Report 8184977-7 (Version None)
Quarter: 2012Q1

REPORT INFORMATION
  Report Type: 
  Country: None (occurrence: None)
  Receive Date: 20120305
  Receipt Date: 20120228
  Transmission Date: 20120608
  Serious: Yes (Hospitalization)
  Sender: FDA-Public Use
  Company Number: JP-GLAXOSMITHKLINE-B0785258A

PATIENT
  Age: 9 Year

DRUGS (3)
  1. REVATIO [Concomitant]
     Indication: PULMONARY HYPERTENSION
     Route: 048
  2. FLOLAN [Suspect]
     Indication: PULMONARY HYPERTENSION
     Route: 042
  3. TRACLEER [Concomitant]
     Indication: PULMONARY HYPERTENSION
     Route: 048

REACTIONS (1)
  - INTERSTITIAL LUNG DISEASE [None]
